FAERS Safety Report 4366429-5 (Version None)
Quarter: 2004Q2

REPORT INFORMATION
  Report Type: 
  Country: None (occurrence: None)
  Receive Date: 20040527
  Receipt Date: 20040322
  Transmission Date: 20050107
  Serious: Yes (Hospitalization)
  Sender: FDA-Public Use
  Company Number: US-BRISTOL-MYERS SQUIBB COMPANY-12538435

PATIENT
  Age: 76 Year
  Sex: Male
  Weight: 76 kg

DRUGS (4)
  1. ERBITUX [Suspect]
     Indication: COLORECTAL CANCER METASTATIC
     Dosage: LOADING DOSE
     Route: 042
     Dates: start: 20040319, end: 20040319
  2. BENADRYL [Concomitant]
     Indication: PREMEDICATION
     Dates: start: 20040319, end: 20040319
  3. ALOXI [Concomitant]
     Indication: PREMEDICATION
     Dates: start: 20040319, end: 20040319
  4. DECADRON [Concomitant]
     Indication: PREMEDICATION
     Dates: start: 20040319, end: 20040319

REACTIONS (1)
  - ANAPHYLACTIC SHOCK [None]
